FAERS Safety Report 25865815 (Version 2)
Quarter: 2025Q4

REPORT INFORMATION
  Report Type: Spontaneous
  Country: JP (occurrence: JP)
  Receive Date: 20250930
  Receipt Date: 20251016
  Transmission Date: 20260117
  Serious: Yes (Hospitalization)
  Sender: GUERBET
  Company Number: JP-GUERBETG_JAPAN-JP-20250162

PATIENT
  Age: 46 Year
  Sex: Female

DRUGS (2)
  1. LIPIODOL [Suspect]
     Active Substance: ETHIODIZED OIL
     Indication: Therapeutic embolisation
     Dosage: EMBOLIZATION WITH NBCA DILUTED TO 20% WITH LIPIODOL
     Route: 013
     Dates: start: 20240619, end: 20240619
  2. ENBUCRILATE [Suspect]
     Active Substance: ENBUCRILATE
     Indication: Therapeutic embolisation
     Dosage: EMBOLIZATION WITH NBCA DILUTED TO 20% WITH LIPIODOL
     Route: 013

REACTIONS (2)
  - Splenic infarction [Recovering/Resolving]
  - Splenic abscess [Recovering/Resolving]

NARRATIVE: CASE EVENT DATE: 20240628
